FAERS Safety Report 20700931 (Version 1)
Quarter: 2022Q2

REPORT INFORMATION
  Report Type: Spontaneous
  Country: US (occurrence: None)
  Receive Date: 20220411
  Receipt Date: 20220411
  Transmission Date: 20220720
  Serious: Yes (Other)
  Sender: FDA-Public Use
  Company Number: None

PATIENT
  Age: 53 Year
  Sex: Male
  Weight: 99.9 kg

DRUGS (1)
  1. BEBTELOVIMAB [Suspect]
     Active Substance: BEBTELOVIMAB
     Indication: COVID-19 treatment
     Dosage: OTHER FREQUENCY : IV PUSH ONE TIME;?
     Route: 040
     Dates: start: 20220411, end: 20220411

REACTIONS (5)
  - Pain in extremity [None]
  - Arthralgia [None]
  - Muscle spasms [None]
  - Arthralgia [None]
  - Injection related reaction [None]

NARRATIVE: CASE EVENT DATE: 20220411
